FAERS Safety Report 7568696-3 (Version None)
Quarter: 2011Q2

REPORT INFORMATION
  Report Type: 
  Country: None (occurrence: None)
  Receive Date: 20110617
  Receipt Date: 20110602
  Transmission Date: 20111010
  Serious: Yes (Death, Other)
  Sender: FDA-Public Use
  Company Number: AUR-APL-2011-02271

PATIENT
  Sex: Male

DRUGS (4)
  1. PHENYTOIN [Suspect]
     Indication: EPILEPSY
  2. LAMOTRIGINE [Suspect]
     Indication: EPILEPSY
  3. TOPIRAMATE [Suspect]
     Indication: EPILEPSY
     Dosage: ORAL
     Route: 048
  4. VALPROATE SODIUM [Suspect]
     Indication: EPILEPSY

REACTIONS (2)
  - SEPSIS [None]
  - RENAL FAILURE [None]
